FAERS Safety Report 14236271 (Version 1)
Quarter: 2017Q4

REPORT INFORMATION
  Report Type: Spontaneous
  Country: US (occurrence: US)
  Receive Date: 20171129
  Receipt Date: 20171129
  Transmission Date: 20180321
  Serious: No
  Sender: FDA-Public Use
  Company Number: US-PFIZER INC-2017512723

PATIENT
  Sex: Male

DRUGS (1)
  1. ADVIL [Suspect]
     Active Substance: IBUPROFEN
     Indication: NEURALGIA
     Dosage: 3 DF, 3X/DAY (3 TABLETS 3 TIMES A DAY WITH BREAKFAST, LUNCH AND DINNER)

REACTIONS (2)
  - Faeces discoloured [Unknown]
  - Abdominal pain upper [Unknown]
